FAERS Safety Report 8905529 (Version 1)
Quarter: 2012Q4

REPORT INFORMATION
  Report Type: 
  Country: JP (occurrence: JP)
  Receive Date: 20121113
  Receipt Date: 20121113
  Transmission Date: 20130627
  Serious: Yes (Hospitalization)
  Sender: FDA-Public Use
  Company Number: JP-PFIZER INC-2012278062

PATIENT
  Age: 2 Year
  Sex: Male

DRUGS (4)
  1. METHYLPREDNISOLONE [Suspect]
     Indication: INFLUENZA
     Route: 041
  2. METHYLPREDNISOLONE [Suspect]
     Indication: BRONCHITIS ASTHMATIC
  3. FAMOTIDINE [Concomitant]
     Indication: PROPHYLAXIS
     Route: 042
  4. OMEPRAZOLE [Concomitant]
     Dosage: UNK

REACTIONS (2)
  - Duodenal ulcer haemorrhage [Recovered/Resolved]
  - Aneurysm ruptured [Recovered/Resolved]
